FAERS Safety Report 16340768 (Version 1)
Quarter: 2019Q2

REPORT INFORMATION
  Report Type: Spontaneous
  Country: CN (occurrence: CN)
  Receive Date: 20190522
  Receipt Date: 20190522
  Transmission Date: 20190711
  Serious: Yes (Hospitalization, Other)
  Sender: FDA-Public Use
  Company Number: CN-LEO PHARMA-318703

PATIENT
  Age: 25 Year
  Sex: Female

DRUGS (1)
  1. PROTOPIC [Suspect]
     Active Substance: TACROLIMUS
     Indication: ROSACEA
     Route: 061

REACTIONS (2)
  - Demodicidosis [Recovered/Resolved]
  - Product use in unapproved indication [Unknown]
